FAERS Safety Report 6530814-3 (Version None)
Quarter: 2010Q1

REPORT INFORMATION
  Report Type: 
  Country: None (occurrence: None)
  Receive Date: 20100108
  Receipt Date: 20090312
  Transmission Date: 20100710
  Serious: No
  Sender: FDA-Public Use
  Company Number: A0773055A

PATIENT
  Age: 72 Year
  Sex: Male

DRUGS (3)
  1. LOVAZA [Suspect]
     Dosage: 2CAP FOUR TIMES PER DAY
     Route: 048
     Dates: start: 20081001, end: 20090208
  2. AVALIDE [Concomitant]
  3. UNSPECIFIED MEDICATION [Concomitant]

REACTIONS (1)
  - ABDOMINAL DISCOMFORT [None]
